FAERS Safety Report 11754545 (Version 1)
Quarter: 2015Q4

REPORT INFORMATION
  Report Type: Spontaneous
  Country: US (occurrence: None)
  Receive Date: 20151118
  Receipt Date: 20151118
  Transmission Date: 20160304
  Serious: Yes (Other)
  Sender: FDA-Public Use
  Company Number: None

PATIENT
  Age: 30 Year
  Sex: Female
  Weight: 64.8 kg

DRUGS (2)
  1. SALINE INFUSION SOLUTION [Concomitant]
     Active Substance: SODIUM CHLORIDE
  2. PROPOFOL. [Suspect]
     Active Substance: PROPOFOL

REACTIONS (2)
  - Incorrect drug administration rate [None]
  - Status epilepticus [None]

NARRATIVE: CASE EVENT DATE: 20151031
